FAERS Safety Report 8619318-1 (Version None)
Quarter: 2012Q3

REPORT INFORMATION
  Report Type: 
  Country: None (occurrence: None)
  Receive Date: 20120816
  Receipt Date: 20120816
  Transmission Date: 20120928
  Serious: Yes (Hospitalization)
  Sender: FDA-Public Use
  Company Number: None

PATIENT
  Age: 63 Year
  Sex: Male

DRUGS (1)
  1. SULFAMETHOXAZOLE AND TRIMETHOPRIM [Suspect]
     Indication: BRONCHITIS
     Dosage: 800/160 MG BID PO
     Route: 048
     Dates: start: 20120802, end: 20120812

REACTIONS (2)
  - THROMBOCYTOPENIA [None]
  - RASH [None]
